FAERS Safety Report 11975889 (Version 5)
Quarter: 2016Q1

REPORT INFORMATION
  Report Type: Report from Study
  Country: US (occurrence: US)
  Receive Date: 20160129
  Receipt Date: 20160316
  Transmission Date: 20160526
  Serious: Yes (Hospitalization, Other)
  Sender: FDA-Public Use
  Company Number: US-AMGEN-USASL2016008964

PATIENT
  Age: 71 Year
  Sex: Female

DRUGS (3)
  1. ENBREL [Suspect]
     Active Substance: ETANERCEPT
     Indication: RHEUMATOID ARTHRITIS
     Dosage: 50 MG, QWK
     Route: 065
  2. METHOTREXATE [Concomitant]
     Active Substance: METHOTREXATE
     Dosage: EVERY FRIDAY
  3. RELAFEN [Concomitant]
     Active Substance: NABUMETONE
     Dosage: UNK

REACTIONS (14)
  - General physical health deterioration [Unknown]
  - Secretion discharge [Unknown]
  - Fall [Unknown]
  - Hospitalisation [Unknown]
  - Dizziness [Unknown]
  - Productive cough [Unknown]
  - Rhinorrhoea [Unknown]
  - Device issue [Unknown]
  - Transient ischaemic attack [Unknown]
  - Cerebrovascular disorder [Unknown]
  - Cerebrovascular accident [Unknown]
  - Contusion [Unknown]
  - Pruritus [Unknown]
  - Mobility decreased [Unknown]

NARRATIVE: CASE EVENT DATE: 2015
